FAERS Safety Report 7432297-8 (Version None)
Quarter: 2011Q2

REPORT INFORMATION
  Report Type: 
  Country: None (occurrence: None)
  Receive Date: 20110422
  Receipt Date: 20110407
  Transmission Date: 20111010
  Serious: No
  Sender: FDA-Public Use
  Company Number: US-B.I. PHARMACEUTICALS,INC./RIDGEFIELD-2011-BP-10309BP

PATIENT
  Sex: Female

DRUGS (18)
  1. ULTRAM [Concomitant]
     Indication: ARTHRALGIA
     Route: 048
  2. MUPIROCIN [Concomitant]
     Indication: NASAL DISORDER
  3. IMURAN [Concomitant]
     Indication: AUTOIMMUNE DISORDER
     Dosage: 200 MG
     Route: 048
  4. PRILOSEC [Concomitant]
     Indication: GASTROOESOPHAGEAL REFLUX DISEASE
     Dosage: 20 MG
     Route: 048
  5. RANEXA [Concomitant]
     Indication: ANGINA PECTORIS
     Dosage: 1000 MG
     Route: 048
  6. O2 [Concomitant]
     Indication: CHRONIC OBSTRUCTIVE PULMONARY DISEASE
     Route: 055
  7. PRADAXA [Suspect]
     Indication: ANTIPHOSPHOLIPID SYNDROME
     Dosage: 300 MG
     Dates: start: 20110301
  8. IMDUR [Concomitant]
     Indication: ANGINA PECTORIS
     Dosage: 60 MG
     Route: 048
  9. VERELAN [Concomitant]
     Indication: MIGRAINE
     Dosage: 120 MG
     Route: 048
  10. FLUTICASONE PROPIONATE [Concomitant]
     Indication: SINUS DISORDER
  11. ALBUTEROL [Concomitant]
     Indication: CHRONIC OBSTRUCTIVE PULMONARY DISEASE
     Route: 048
  12. VIT B12 [Concomitant]
     Indication: PROPHYLAXIS
  13. PLAQUENIL [Concomitant]
     Indication: SYSTEMIC LUPUS ERYTHEMATOSUS
     Dosage: 400 MG
     Route: 048
     Dates: start: 20090101
  14. SYNTHROID [Concomitant]
     Indication: HYPOTHYROIDISM
     Dosage: 0.1 MG
     Route: 048
  15. DIPENTUM [Concomitant]
     Indication: INFLAMMATORY BOWEL DISEASE
     Dosage: 500 MG
     Route: 048
  16. RESTASIS [Concomitant]
     Indication: DRY EYE
  17. ADVAIR HFA [Concomitant]
     Indication: CHRONIC OBSTRUCTIVE PULMONARY DISEASE
     Route: 048
  18. ULTRAM [Concomitant]
     Indication: MYALGIA

REACTIONS (6)
  - ABDOMINAL PAIN UPPER [None]
  - MIDDLE INSOMNIA [None]
  - DIZZINESS [None]
  - SALIVARY HYPERSECRETION [None]
  - NIGHT SWEATS [None]
  - SOMNOLENCE [None]
